FAERS Safety Report 10228322 (Version 1)
Quarter: 2014Q2

REPORT INFORMATION
  Report Type: Spontaneous
  Country: US (occurrence: None)
  Receive Date: 20140505
  Receipt Date: 20140505
  Transmission Date: 20141212
  Serious: No
  Sender: FDA-Public Use
  Company Number: US-014518

PATIENT
  Age: 33 Year
  Sex: Female

DRUGS (1)
  1. PICO-SALIX (NOT SPECIFIED) [Suspect]
     Indication: UNEVALUABLE EVENT
     Dosage: TOTAL
     Dates: start: 20140123, end: 20140123

REACTIONS (1)
  - Dysgeusia [None]
